FAERS Safety Report 12631772 (Version 2)
Quarter: 2016Q3

REPORT INFORMATION
  Report Type: Spontaneous
  Country: US (occurrence: US)
  Receive Date: 20160808
  Receipt Date: 20160808
  Transmission Date: 20161109
  Serious: No
  Sender: FDA-Public Use
  Company Number: US-BEH-2016060961

PATIENT
  Sex: Female
  Weight: 112 kg

DRUGS (13)
  1. SINGULAIR [Concomitant]
     Active Substance: MONTELUKAST SODIUM
  2. MIRENA [Concomitant]
     Active Substance: LEVONORGESTREL
  3. CLONAZEPAM. [Concomitant]
     Active Substance: CLONAZEPAM
  4. FLORASTOR [Concomitant]
     Active Substance: SACCHAROMYCES CEREVISIAE
  5. VITAMIN B12 [Concomitant]
     Active Substance: CYANOCOBALAMIN
  6. VITAMIN D3 [Concomitant]
     Active Substance: CHOLECALCIFEROL
  7. HIZENTRA [Suspect]
     Active Substance: HUMAN IMMUNOGLOBULIN G
     Route: 058
  8. HIZENTRA [Suspect]
     Active Substance: HUMAN IMMUNOGLOBULIN G
     Route: 058
  9. METFORMIN [Concomitant]
     Active Substance: METFORMIN HYDROCHLORIDE
  10. SYNTHROID [Concomitant]
     Active Substance: LEVOTHYROXINE SODIUM
  11. PINDOLOL. [Concomitant]
     Active Substance: PINDOLOL
  12. HIZENTRA [Suspect]
     Active Substance: HUMAN IMMUNOGLOBULIN G
     Route: 058
  13. CURCUMIN [Concomitant]
     Active Substance: CURCUMIN

REACTIONS (6)
  - Infusion site pain [Unknown]
  - Erythema [Unknown]
  - Swelling [Unknown]
  - Migraine [Unknown]
  - Dehydration [Unknown]
  - Fatigue [Unknown]
